FAERS Safety Report 16349752 (Version 4)
Quarter: 2019Q4

REPORT INFORMATION
  Report Type: Report from Study
  Country: US (occurrence: US)
  Receive Date: 20190523
  Receipt Date: 20191211
  Transmission Date: 20200122
  Serious: Yes (Other)
  Sender: FDA-Public Use
  Company Number: PHEH2019US022161

PATIENT
  Sex: Female

DRUGS (1)
  1. GILENYA [Suspect]
     Active Substance: FINGOLIMOD HYDROCHLORIDE
     Indication: MULTIPLE SCLEROSIS
     Dosage: 0.5 MG, QD
     Route: 048
     Dates: start: 2007

REACTIONS (11)
  - Multiple sclerosis relapse [Unknown]
  - Tremor [Unknown]
  - Visual impairment [Unknown]
  - Visual acuity reduced [Unknown]
  - Fatigue [Unknown]
  - Vision blurred [Unknown]
  - Muscular weakness [Unknown]
  - Pulmonary fibrosis [Unknown]
  - Cardiac valve disease [Unknown]
  - Productive cough [Unknown]
  - Migraine [Unknown]

NARRATIVE: CASE EVENT DATE: 2019
